FAERS Safety Report 17951547 (Version 2)
Quarter: 2020Q4

REPORT INFORMATION
  Report Type: Report from Study
  Country: NL (occurrence: NL)
  Receive Date: 20200626
  Receipt Date: 20201222
  Transmission Date: 20210113
  Serious: Yes (Other)
  Sender: FDA-Public Use
  Company Number: NL-MYLANLABS-2020M1058440

PATIENT
  Sex: Male

DRUGS (1)
  1. GLATIRAMEERACETAAT MYLAN 40 MG/ML [Suspect]
     Active Substance: GLATIRAMER ACETATE
     Indication: MULTIPLE SCLEROSIS
     Dosage: UNK UNK, 3XW
     Route: 058

REACTIONS (4)
  - Limb discomfort [Recovering/Resolving]
  - Gait disturbance [Recovering/Resolving]
  - Multiple sclerosis [Recovering/Resolving]
  - Neuralgia [Recovering/Resolving]

NARRATIVE: CASE EVENT DATE: 20200209
